FAERS Safety Report 6398471-7 (Version None)
Quarter: 2009Q4

REPORT INFORMATION
  Report Type: 
  Country: None (occurrence: None)
  Receive Date: 20091013
  Receipt Date: 20091007
  Transmission Date: 20100525
  Serious: Yes (Other)
  Sender: FDA-Public Use
  Company Number: A0811231A

PATIENT
  Age: 14 Year
  Sex: Male

DRUGS (2)
  1. LAMICTAL [Suspect]
     Dosage: 400MG TWICE PER DAY
     Route: 048
     Dates: start: 20060101
  2. METFORMIN HYDROCHLORIDE [Suspect]
     Dosage: 500MG PER DAY
     Route: 048
     Dates: start: 20090910, end: 20090915

REACTIONS (3)
  - CONVULSION [None]
  - PETIT MAL EPILEPSY [None]
  - UNDERDOSE [None]
